FAERS Safety Report 17198552 (Version 1)
Quarter: 2019Q4

REPORT INFORMATION
  Report Type: Spontaneous
  Country: US (occurrence: US)
  Receive Date: 20191203
  Receipt Date: 20191203
  Transmission Date: 20200122
  Serious: Yes (Other)
  Sender: FDA-Public Use
  Company Number: None

PATIENT
  Age: 78 Year
  Sex: Female
  Weight: 56.7 kg

DRUGS (1)
  1. MONTELUKAST [Suspect]
     Active Substance: MONTELUKAST SODIUM
     Indication: RESPIRATION ABNORMAL
     Route: 048
     Dates: start: 20190303

REACTIONS (5)
  - Anxiety [None]
  - Panic attack [None]
  - Paraesthesia [None]
  - Nightmare [None]
  - Blood pressure increased [None]

NARRATIVE: CASE EVENT DATE: 20190321
